FAERS Safety Report 18364408 (Version 1)
Quarter: 2020Q4

REPORT INFORMATION
  Report Type: Spontaneous
  Country: US (occurrence: US)
  Receive Date: 20201008
  Receipt Date: 20201008
  Transmission Date: 20210114
  Serious: Yes (Other)
  Sender: FDA-Public Use
  Company Number: None

PATIENT
  Age: 80 Year
  Sex: Female

DRUGS (8)
  1. OMEGA 3 FATTY GEL [Concomitant]
  2. LUTEIN [Concomitant]
     Active Substance: LUTEIN
  3. MULTIVITAMIN [Concomitant]
     Active Substance: VITAMINS
  4. METHIMAZOLE. [Concomitant]
     Active Substance: METHIMAZOLE
  5. METOPROLOL SUCCINATE ER [Suspect]
     Active Substance: METOPROLOL SUCCINATE
     Indication: ATRIAL FIBRILLATION
     Dosage: ?          QUANTITY:90 TABLET(S);?
     Route: 048
  6. CALCIUM [Concomitant]
     Active Substance: CALCIUM
  7. MAGNESIUM [Concomitant]
     Active Substance: MAGNESIUM
  8. POTASSIUM [Concomitant]
     Active Substance: POTASSIUM

REACTIONS (2)
  - Atrial flutter [None]
  - Hypertension [None]

NARRATIVE: CASE EVENT DATE: 20200916
